FAERS Safety Report 9649700 (Version 9)
Quarter: 2014Q3

REPORT INFORMATION
  Report Type: Report from Study
  Country: CA (occurrence: CA)
  Receive Date: 20131028
  Receipt Date: 20140705
  Transmission Date: 20150326
  Serious: Yes (Hospitalization)
  Sender: FDA-Public Use
  Company Number: CA-009507513-1308CAN006244

PATIENT
  Age: 48 Year
  Sex: Female
  Weight: 76.3 kg

DRUGS (26)
  1. VENTOLIN [Concomitant]
     Active Substance: ALBUTEROL SULFATE
     Indication: ASTHMA
     Dosage: 1000 MG DAILY
     Route: 055
     Dates: start: 1990
  2. VITAMIN E ACETATE [Concomitant]
     Active Substance: .ALPHA.-TOCOPHEROL ACETATE
     Indication: VITAMIN SUPPLEMENTATION
  3. DEXAMETHASONE. [Concomitant]
     Active Substance: DEXAMETHASONE
     Indication: SMALL INTESTINAL OBSTRUCTION
  4. RANITIDINE [Concomitant]
     Active Substance: RANITIDINE\RANITIDINE HYDROCHLORIDE
     Indication: GASTROOESOPHAGEAL REFLUX DISEASE
     Dosage: DAILY DOSE: 300 MG (150 MG, 2 IN 1 DAY)
     Route: 048
     Dates: start: 20130320
  5. VITAMIN E ACETATE [Concomitant]
     Active Substance: .ALPHA.-TOCOPHEROL ACETATE
     Indication: NEUROPATHY PERIPHERAL
     Dosage: DAILY DOSE: 400 IU, (400 IU, 1 IN 1 DAY)
     Route: 048
     Dates: start: 20130803
  6. GRANISETRON [Concomitant]
     Active Substance: GRANISETRON
     Indication: PROPHYLAXIS OF NAUSEA AND VOMITING
     Dosage: 2 MG, PRE CHEMO
     Route: 048
     Dates: start: 20130729
  7. GRANISETRON [Concomitant]
     Active Substance: GRANISETRON
     Indication: PROPHYLAXIS OF NAUSEA AND VOMITING
     Dosage: DAILY DOSE: 2 MG, POST CHEMO
     Route: 048
     Dates: start: 20130730
  8. METOCLOPRAMIDE. [Concomitant]
     Active Substance: METOCLOPRAMIDE
     Indication: ANTIEMETIC SUPPORTIVE CARE
  9. DEXAMETHASONE. [Concomitant]
     Active Substance: DEXAMETHASONE
     Indication: PROPHYLAXIS OF NAUSEA AND VOMITING
     Dosage: DAILY DOSE: 20 MG, PRE CHEMO
     Route: 048
     Dates: start: 20130729
  10. RESTORALAX [Concomitant]
     Indication: BOWEL MOVEMENT IRREGULARITY
     Dosage: DAILY DOSE: 34 MG (17 MG, 2 IN 1 DAY)
     Route: 048
     Dates: start: 20130729
  11. SYMBICORT [Concomitant]
     Active Substance: BUDESONIDE\FORMOTEROL FUMARATE DIHYDRATE
     Indication: ASTHMA
     Dosage: 2 PUFFS DAILY
     Route: 055
     Dates: start: 2001
  12. LACTOBACILLUS ACIDOPHILUS [Concomitant]
     Active Substance: LACTOBACILLUS ACIDOPHILUS
     Indication: SUPPLEMENTATION THERAPY
     Dosage: (3 DF IN 1 DAY), TID
     Route: 048
     Dates: start: 20130729
  13. VINTAFOLIDE [Suspect]
     Active Substance: VINTAFOLIDE
     Indication: OVARIAN CANCER
     Dosage: 2.5 MG, ON DAY 1, 3, 5, 15, 17, 19 OF A 4 WEEK CYCLE
     Route: 042
     Dates: start: 20130729, end: 20130802
  14. ERGOCALCIFEROL. [Concomitant]
     Active Substance: ERGOCALCIFEROL
     Indication: VITAMIN SUPPLEMENTATION
     Dosage: DAILY DOSE: 4000 MG, (1000 MG, 4 IN 1 DAY)
     Route: 048
     Dates: start: 20130729
  15. ZOPICLONE [Concomitant]
     Active Substance: ZOPICLONE
     Indication: INSOMNIA
     Dosage: 7.5 MG AT BEDTIME
     Route: 048
     Dates: start: 20130801
  16. DEXAMETHASONE. [Concomitant]
     Active Substance: DEXAMETHASONE
     Indication: ABDOMINAL DISTENSION
     Dosage: 2 MG, BID (2 MG, 2 IN 1 DAY)
     Route: 048
     Dates: start: 20130724, end: 20130805
  17. OCTREOTIDE [Concomitant]
     Active Substance: OCTREOTIDE
     Indication: SMALL INTESTINAL OBSTRUCTION
     Dosage: DAILY DOSE: 900 MG (300 MG, 3 IN 1 DAY)
     Route: 058
     Dates: start: 20130806
  18. FOLIC ACID. [Suspect]
     Active Substance: FOLIC ACID
     Indication: SINGLE PHOTON EMISSION COMPUTERISED TOMOGRAM
     Dosage: 0.2 ML, ONCE
     Route: 042
     Dates: start: 20130717, end: 20130717
  19. LIPITAC [Concomitant]
     Indication: SUPPLEMENTATION THERAPY
     Dosage: DAILY DOSE: 1000 MG, QD (1000 MG 1 IN 1 DAY)
     Route: 048
     Dates: start: 201307
  20. EC20-FOLATE(+)TECHNETIUMN CH.AG [Suspect]
     Active Substance: TECHNETIUM TC-99M LIDOFENIN
     Indication: SINGLE PHOTON EMISSION COMPUTERISED TOMOGRAM
     Dosage: 1.7ML ONCE
     Route: 042
     Dates: start: 20130717, end: 20130717
  21. METOCLOPRAMIDE. [Concomitant]
     Active Substance: METOCLOPRAMIDE
     Indication: BOWEL MOVEMENT IRREGULARITY
     Dosage: DAILY DOSE: 10 MG, PRN
     Route: 048
     Dates: start: 20130729
  22. DEXAMETHASONE. [Concomitant]
     Active Substance: DEXAMETHASONE
     Indication: PROPHYLAXIS OF NAUSEA AND VOMITING
     Dosage: 4 MG, BID (4 MG, 2 IN 1 DAY), DAILY DOSE: 8 MG
     Route: 048
     Dates: start: 20130730
  23. RANITIDINE [Concomitant]
     Active Substance: RANITIDINE\RANITIDINE HYDROCHLORIDE
     Dosage: DAILY DOSE: 300 MG (150 MG, 2 IN 1 DAY)
     Route: 048
     Dates: start: 20130806
  24. VINTAFOLIDE [Suspect]
     Active Substance: VINTAFOLIDE
     Dosage: UNK
     Dates: start: 20130923, end: 20131021
  25. PEGYLATED LIPOSOMAL DOXORUBICIN [Suspect]
     Active Substance: DOXORUBICIN
     Indication: OVARIAN CANCER
     Dosage: 77 MG,(77 MG, 1 IN 28 D)
     Route: 042
     Dates: start: 20130729, end: 20131021
  26. UBIDECARENONE [Concomitant]
     Active Substance: UBIDECARENONE
     Indication: SUPPLEMENTATION THERAPY
     Dosage: DAILY DOSE: 30 MG (30 MG, 1 IN 1 DAY)
     Route: 048
     Dates: start: 2010

REACTIONS (1)
  - Small intestinal obstruction [Recovered/Resolved]

NARRATIVE: CASE EVENT DATE: 20130806
